FAERS Safety Report 8371060-0 (Version None)
Quarter: 2012Q2

REPORT INFORMATION
  Report Type: 
  Country: None (occurrence: None)
  Receive Date: 20120518
  Receipt Date: 20110329
  Transmission Date: 20120825
  Serious: No
  Sender: FDA-Public Use
  Company Number: US-BRISTOL-MYERS SQUIBB COMPANY-15644933

PATIENT

DRUGS (1)
  1. BARACLUDE [Suspect]
     Dosage: FOR 2 MONTHS

REACTIONS (1)
  - LEUKOPENIA [None]
